FAERS Safety Report 13029491 (Version 4)
Quarter: 2017Q1

REPORT INFORMATION
  Report Type: Spontaneous
  Country: US (occurrence: US)
  Receive Date: 20161215
  Receipt Date: 20170323
  Transmission Date: 20170428
  Serious: Yes (Hospitalization)
  Sender: FDA-Public Use
  Company Number: US-009507513-1612USA007408

PATIENT
  Sex: Female

DRUGS (1)
  1. VYTORIN [Suspect]
     Active Substance: EZETIMIBE\SIMVASTATIN
     Indication: BLOOD CHOLESTEROL ABNORMAL
     Dosage: UNK
     Route: 048
     Dates: start: 2010

REACTIONS (7)
  - Dysgeusia [Unknown]
  - Burn oesophageal [Unknown]
  - Gastric pH decreased [Unknown]
  - Product taste abnormal [Unknown]
  - Inflammation [Unknown]
  - Back pain [Unknown]
  - Cough [Unknown]
